FAERS Safety Report 12539857 (Version 3)
Quarter: 2016Q4

REPORT INFORMATION
  Report Type: Report from Study
  Country: ES (occurrence: ES)
  Receive Date: 20160708
  Receipt Date: 20161013
  Transmission Date: 20170207
  Serious: Yes (Other)
  Sender: FDA-Public Use
  Company Number: ES-ROCHE-1787470

PATIENT
  Sex: Male
  Weight: 112.8 kg

DRUGS (3)
  1. VEMURAFENIB [Suspect]
     Active Substance: VEMURAFENIB
     Indication: METASTATIC MALIGNANT MELANOMA
     Dosage: LAST DOSE PRIOR TO SAE 27/JUN/2016
     Route: 048
     Dates: start: 20151116
  2. COBIMETINIB [Suspect]
     Active Substance: COBIMETINIB
     Indication: METASTATIC MALIGNANT MELANOMA
     Dosage: MOST RECENT DOSE OF COBIMETINIB WAS ON 26/JUN/2016.
     Route: 048
     Dates: start: 20151117
  3. OMEPRAZOL [Concomitant]
     Active Substance: OMEPRAZOLE

REACTIONS (1)
  - Dysplasia [Recovering/Resolving]
